FAERS Safety Report 14027516 (Version 1)
Quarter: 2017Q3

REPORT INFORMATION
  Report Type: Spontaneous
  Country: US (occurrence: US)
  Receive Date: 20170929
  Receipt Date: 20170929
  Transmission Date: 20171128
  Serious: Yes (Hospitalization)
  Sender: FDA-Public Use
  Company Number: US-ROCHE-2000539

PATIENT
  Age: 38 Year
  Sex: Male

DRUGS (1)
  1. GANCICLOVIR. [Suspect]
     Active Substance: GANCICLOVIR
     Indication: CYTOMEGALOVIRUS CHORIORETINITIS
     Route: 042

REACTIONS (5)
  - Thrombocytopenia [Unknown]
  - Vitreous haemorrhage [Unknown]
  - Hemiparesis [Unknown]
  - Upper gastrointestinal haemorrhage [Unknown]
  - Haemorrhage intracranial [Unknown]
